FAERS Safety Report 8798427 (Version 1)
Quarter: 2012Q4

REPORT INFORMATION
  Report Type: Spontaneous
  Country: US (occurrence: None)
  Receive Date: 20120917
  Receipt Date: 20120917
  Transmission Date: 20130627
  Serious: No
  Sender: FDA-Public Use
  Company Number: None

PATIENT
  Age: 64 Year
  Sex: Male
  Weight: 77.7 kg

DRUGS (3)
  1. CLOPIDOGREL [Suspect]
     Indication: CARDIOVASCULAR DISORDER
     Route: 048
     Dates: start: 20090626
  2. CLOPIDOGREL [Suspect]
     Indication: SURGERY
     Route: 048
     Dates: start: 20090626
  3. ASPIRIN [Suspect]
     Route: 048
     Dates: start: 19980325

REACTIONS (3)
  - Road traffic accident [None]
  - Haemorrhage [None]
  - Haemoglobin decreased [None]
